FAERS Safety Report 17889855 (Version 1)
Quarter: 2020Q2

REPORT INFORMATION
  Report Type: Report from Study
  Country: US (occurrence: US)
  Receive Date: 20200612
  Receipt Date: 20200612
  Transmission Date: 20200714
  Serious: Yes (Death)
  Sender: FDA-Public Use
  Company Number: US-PFIZER INC-2020228765

PATIENT

DRUGS (5)
  1. ANTITHYMOCYTE IMMUNOGLOBULIN (RABBIT) [Concomitant]
     Active Substance: LAPINE T-LYMPHOCYTE IMMUNE GLOBULIN
     Indication: PROPHYLAXIS AGAINST GRAFT VERSUS HOST DISEASE
     Dosage: 1.5 MG/KG, (ON D-5, -3 AND -1)
  2. MYCOPHENOLATE MOFETIL. [Concomitant]
     Active Substance: MYCOPHENOLATE MOFETIL
     Indication: PROPHYLAXIS AGAINST GRAFT VERSUS HOST DISEASE
     Dosage: 1000 MG, 3X/DAY (EVERY 8 HOURS D -2 TO -28)
  3. MELPHALAN. [Suspect]
     Active Substance: MELPHALAN
     Indication: HAEMATOLOGICAL MALIGNANCY
     Dosage: 140 MG/M2, CYCLIC, (ON D -2)
  4. TACROLIMUS. [Concomitant]
     Active Substance: TACROLIMUS
     Indication: PROPHYLAXIS AGAINST GRAFT VERSUS HOST DISEASE
     Dosage: UNK (WAS STARTED D-2 AND CONTINUED UNTIL APPROXIMATELY D+180)
  5. FLUDARABINE PHOSPHATE. [Suspect]
     Active Substance: FLUDARABINE PHOSPHATE
     Indication: HAEMATOLOGICAL MALIGNANCY
     Dosage: 30 MG/M2, CYCLIC, (ON DAY (D)-7 TO -3)

REACTIONS (1)
  - Venoocclusive disease [Fatal]
